FAERS Safety Report 17938846 (Version 4)
Quarter: 2023Q4

REPORT INFORMATION
  Report Type: Report from Study
  Country: US (occurrence: None)
  Receive Date: 20200625
  Receipt Date: 20231208
  Transmission Date: 20240110
  Serious: Yes (Hospitalization)
  Sender: FDA-Public Use
  Company Number: US-ROCHE-2628345

PATIENT
  Age: 59 Year
  Sex: Female
  Weight: 70.7 kg

DRUGS (30)
  1. ATEZOLIZUMAB [Suspect]
     Active Substance: ATEZOLIZUMAB
     Indication: Adenocarcinoma of the cervix
     Dosage: MOST RECENT DOSE: 02/JUL/2020
     Route: 041
     Dates: start: 20200605, end: 20200621
  2. BEVACIZUMAB [Suspect]
     Active Substance: BEVACIZUMAB
     Indication: Adenocarcinoma of the cervix
     Dosage: 8 CYCLES
     Route: 065
     Dates: start: 20190827, end: 20191119
  3. BEVACIZUMAB [Suspect]
     Active Substance: BEVACIZUMAB
     Dosage: 2 CYCLES
     Route: 065
     Dates: start: 20200218, end: 20200324
  4. CISPLATIN [Concomitant]
     Active Substance: CISPLATIN
     Indication: Cervix cancer metastatic
     Dosage: 8 CYCLES
     Dates: start: 20190827, end: 20191119
  5. CISPLATIN [Concomitant]
     Active Substance: CISPLATIN
     Dosage: 2 CYCLES
     Dates: start: 20200218, end: 20200324
  6. CISPLATIN [Concomitant]
     Active Substance: CISPLATIN
     Dates: start: 20170711, end: 20170714
  7. PACLITAXEL [Concomitant]
     Active Substance: PACLITAXEL
     Indication: Cervix cancer metastatic
     Dosage: 8 CYCLES
     Dates: start: 20190827, end: 20191119
  8. GEMCITABINE [Concomitant]
     Active Substance: GEMCITABINE
     Indication: Cervix cancer metastatic
     Dates: start: 20200218, end: 20200324
  9. OXYCODONE [Concomitant]
     Active Substance: OXYCODONE
     Indication: Pain
     Dosage: 10-20 MG
  10. PHENAZOPYRIDINE [Concomitant]
     Active Substance: PHENAZOPYRIDINE
  11. METHENAMINE [Concomitant]
     Active Substance: METHENAMINE
     Dates: start: 20200608
  12. LIDOCAINE [Concomitant]
     Active Substance: LIDOCAINE
     Indication: Urethral pain
     Dates: start: 20200618
  13. HALOPERIDOL [Concomitant]
     Active Substance: HALOPERIDOL
  14. ZOFRAN [Concomitant]
     Active Substance: ONDANSETRON HYDROCHLORIDE
     Indication: Nausea
     Dates: start: 20200713
  15. ZOFRAN [Concomitant]
     Active Substance: ONDANSETRON HYDROCHLORIDE
     Indication: Vomiting
  16. OLANZAPINE [Concomitant]
     Active Substance: OLANZAPINE
     Indication: Nausea
     Dates: start: 20200713
  17. MEGESTROL [Concomitant]
     Active Substance: MEGESTROL
     Dates: start: 20200713
  18. FAMOTIDINE [Concomitant]
     Active Substance: FAMOTIDINE
     Indication: Dyspepsia
  19. ONDANSETRON [Concomitant]
     Active Substance: ONDANSETRON
     Dates: start: 20200124
  20. DULOXETINE [Concomitant]
     Active Substance: DULOXETINE
     Dates: start: 20200218
  21. DOCUSATE [Concomitant]
     Active Substance: DOCUSATE
  22. ACETAMINOPHEN\HYDROCODONE [Concomitant]
     Active Substance: ACETAMINOPHEN\HYDROCODONE
     Dates: start: 20200522
  23. AMOXICILLIN\CLAVULANIC ACID [Concomitant]
     Active Substance: AMOXICILLIN\CLAVULANIC ACID
     Dates: start: 20200526, end: 20200601
  24. SODIUM CHLORIDE [Concomitant]
     Active Substance: SODIUM CHLORIDE
     Dates: start: 20200617
  25. DROPERIDOL [Concomitant]
     Active Substance: DROPERIDOL
     Dates: start: 20200617
  26. MORPHINE SULFATE [Concomitant]
     Active Substance: MORPHINE SULFATE
     Dates: start: 20200617
  27. IOHEXOL [Concomitant]
     Active Substance: IOHEXOL
     Dates: start: 20200617
  28. ENOXAPARIN [Concomitant]
     Active Substance: ENOXAPARIN
     Dates: start: 20200618, end: 20200622
  29. POLYETHYLENE GLYCOL [Concomitant]
     Active Substance: POLYETHYLENE GLYCOL
     Dates: start: 20200618, end: 20200622
  30. SIMETHICONE (DIMETHICONE) [Concomitant]
     Active Substance: DIMETHICONE
     Dates: start: 20200617, end: 20200618

REACTIONS (4)
  - Constipation [Not Recovered/Not Resolved]
  - Urinary tract pain [Not Recovered/Not Resolved]
  - Lethargy [Unknown]
  - Mental status changes [Unknown]

NARRATIVE: CASE EVENT DATE: 20200617
